FAERS Safety Report 11009075 (Version 2)
Quarter: 2015Q2

REPORT INFORMATION
  Report Type: Spontaneous
  Country: AR (occurrence: None)
  Receive Date: 20150408
  Receipt Date: 20150410
  Transmission Date: 20150821
  Serious: Yes (Other)
  Sender: FDA-Public Use
  Company Number: AR2015GSK036022

PATIENT
  Age: 65 Year
  Sex: Male

DRUGS (9)
  1. CARVEDILOL. [Concomitant]
     Active Substance: CARVEDILOL
  2. ABACAVIR [Concomitant]
     Active Substance: ABACAVIR
  3. RAQUIFEROL (PARICALCITOL) [Concomitant]
  4. TIVICAY [Suspect]
     Active Substance: DOLUTEGRAVIR SODIUM
     Indication: HIV INFECTION
     Route: 048
     Dates: start: 20141015, end: 20150210
  5. RITONAVIR. [Concomitant]
     Active Substance: RITONAVIR
  6. LAMIVUDINE. [Concomitant]
     Active Substance: LAMIVUDINE
  7. LOSARTAN (LOSARTAN POTASSIUM) [Concomitant]
  8. ATAZANAVIR [Concomitant]
     Active Substance: ATAZANAVIR
  9. RALTEGRAVIR [Concomitant]
     Active Substance: RALTEGRAVIR

REACTIONS (4)
  - Asthenia [None]
  - Crying [None]
  - Suicidal ideation [None]
  - Anxiety [None]

NARRATIVE: CASE EVENT DATE: 20141230
